FAERS Safety Report 8093720-1 (Version None)
Quarter: 2012Q1

REPORT INFORMATION
  Report Type: 
  Country: None (occurrence: None)
  Receive Date: 20120129
  Receipt Date: 20111026
  Transmission Date: 20120608
  Serious: No
  Sender: FDA-Public Use
  Company Number: US-ABBOTT-11P-163-0868722-00

PATIENT
  Age: 29 Year
  Sex: Female

DRUGS (3)
  1. IMODIUM [Concomitant]
     Indication: DIARRHOEA
  2. MG DICYCLOMINE [Concomitant]
     Indication: ABDOMINAL PAIN UPPER
  3. HUMIRA [Suspect]
     Indication: CROHN'S DISEASE
     Dosage: LOADING DOSE
     Dates: start: 20111021, end: 20111021

REACTIONS (3)
  - TREMOR [None]
  - NAUSEA [None]
  - DIZZINESS [None]
